FAERS Safety Report 13302333 (Version 1)
Quarter: 2017Q1

REPORT INFORMATION
  Report Type: Spontaneous
  Country: US (occurrence: US)
  Receive Date: 20170307
  Receipt Date: 20170307
  Transmission Date: 20170428
  Serious: No
  Sender: FDA-Public Use
  Company Number: US-PFIZER INC-2017097322

PATIENT
  Age: 38 Year
  Sex: Female
  Weight: 52 kg

DRUGS (3)
  1. MORPHINE SULFATE. [Suspect]
     Active Substance: MORPHINE SULFATE
  2. DEMEROL [Suspect]
     Active Substance: MEPERIDINE HYDROCHLORIDE
  3. DILAUDID [Suspect]
     Active Substance: HYDROMORPHONE HYDROCHLORIDE

REACTIONS (2)
  - Hallucination [Unknown]
  - Attention deficit/hyperactivity disorder [Unknown]
